FAERS Safety Report 24689203 (Version 2)
Quarter: 2024Q4

REPORT INFORMATION
  Report Type: Report from Study
  Country: JP (occurrence: JP)
  Receive Date: 20241203
  Receipt Date: 20241213
  Transmission Date: 20250115
  Serious: Yes (Life-Threatening, Hospitalization, Other)
  Sender: ARGENX BVBA
  Company Number: JP-ARGENX-2024-ARGX-JP008727AA

PATIENT

DRUGS (12)
  1. EFGARTIGIMOD ALFA [Suspect]
     Active Substance: EFGARTIGIMOD ALFA
     Indication: Immune thrombocytopenia
     Dosage: 10 MG/KG
     Route: 042
     Dates: start: 20240919, end: 20241003
  2. PREDNISOLONE [Concomitant]
     Active Substance: PREDNISOLONE
     Indication: Immune thrombocytopenia
     Dosage: UNK
     Route: 065
  3. TAVALISSE [Concomitant]
     Active Substance: FOSTAMATINIB
     Indication: Immune thrombocytopenia
     Dosage: UNK
     Route: 065
  4. TAVALISSE [Concomitant]
     Active Substance: FOSTAMATINIB
     Dosage: 150 MG, DAILY
     Route: 048
  5. LEVOTHYROXINE [Concomitant]
     Active Substance: LEVOTHYROXINE
     Indication: Hypothyroidism
     Dosage: 50 UG, DAILY
     Route: 048
  6. PREDONINE [Concomitant]
     Active Substance: PREDNISOLONE
     Indication: Immune thrombocytopenia
     Dosage: 5 MG, DAILY
     Route: 048
  7. LORELCO [Concomitant]
     Active Substance: PROBUCOL
     Indication: Product used for unknown indication
     Dosage: 250 MG, TID
     Route: 048
  8. EPL CAP. [Concomitant]
     Indication: Lipids abnormal
     Dosage: 500 MG, TID
     Route: 048
  9. AZILSARTAN KAMEDOXOMIL [Concomitant]
     Active Substance: AZILSARTAN KAMEDOXOMIL
     Indication: Hypertension
     Dosage: 20 MG, DAILY
     Route: 048
  10. AMLODIPINE [Concomitant]
     Active Substance: AMLODIPINE BESYLATE
     Indication: Hypertension
     Dosage: 10 MG, DAILY
     Route: 048
  11. FAMOTIDINE [Concomitant]
     Active Substance: FAMOTIDINE
     Indication: Peptic ulcer
     Dosage: 10 MG, DAILY
     Route: 048
  12. SODIUM FERROUS CITRATE [Concomitant]
     Active Substance: SODIUM FERROUS CITRATE
     Indication: Iron deficiency anaemia
     Dosage: 50 MG, DAILY
     Route: 048

REACTIONS (7)
  - Immune thrombocytopenia [Recovered/Resolved]
  - Mouth haemorrhage [Recovered/Resolved]
  - Epistaxis [Recovered/Resolved]
  - Haemorrhagic diathesis [Recovered/Resolved]
  - Platelet count decreased [Recovered/Resolved]
  - Blood immunoglobulin G decreased [Recovered/Resolved]
  - Drug ineffective [Unknown]

NARRATIVE: CASE EVENT DATE: 20241003
